FAERS Safety Report 4691008-X (Version None)
Quarter: 2005Q2

REPORT INFORMATION
  Report Type: 
  Country: None (occurrence: None)
  Receive Date: 20050610
  Receipt Date: 20050602
  Transmission Date: 20051028
  Serious: Yes (Other)
  Sender: FDA-Public Use
  Company Number: 2005082036

PATIENT
  Age: 63 Year
  Sex: Male

DRUGS (5)
  1. LIPITOR [Suspect]
     Indication: HYPERLIPIDAEMIA
     Dosage: 10 MG (DAILY)O RAL
     Route: 048
     Dates: start: 20050216, end: 20050506
  2. ALLOPURINOL [Concomitant]
  3. THEOLONG (THEOPHYLLINE) [Concomitant]
  4. SEREVENT [Concomitant]
  5. PULMICORT [Concomitant]

REACTIONS (3)
  - MUSCLE RIGIDITY [None]
  - MUSCLE SPASMS [None]
  - MUSCULOSKELETAL STIFFNESS [None]
